FAERS Safety Report 8369946-6 (Version None)
Quarter: 2012Q2

REPORT INFORMATION
  Report Type: 
  Country: None (occurrence: None)
  Receive Date: 20120518
  Receipt Date: 20120514
  Transmission Date: 20120825
  Serious: Yes (Other)
  Sender: FDA-Public Use
  Company Number: US-PFIZER INC-2012100924

PATIENT
  Sex: Female
  Weight: 81.2 kg

DRUGS (7)
  1. SIMVASTATIN [Suspect]
     Dosage: 15 MG, DAILY
  2. XANAX [Concomitant]
     Dosage: 0.5 MG, DAILY
  3. SIMVASTATIN [Suspect]
     Dosage: 10 MG, DAILY
  4. SIMVASTATIN [Suspect]
     Indication: BLOOD CHOLESTEROL INCREASED
     Dosage: 5 MG, DAILY
     Dates: start: 20100101
  5. NORVASC [Suspect]
     Indication: HYPERTENSION
     Dosage: 10 MG, DAILY
     Route: 048
     Dates: start: 20100101
  6. LEVAQUIN [Suspect]
     Dosage: UNK
  7. MEDROL [Suspect]
     Indication: INTERVERTEBRAL DISC DISORDER
     Dosage: UNK, DAILY
     Dates: start: 20100101

REACTIONS (5)
  - VASCULAR CALCIFICATION [None]
  - VITAMIN D DECREASED [None]
  - JOINT SWELLING [None]
  - DIZZINESS [None]
  - TRANSIENT ISCHAEMIC ATTACK [None]
